FAERS Safety Report 12928219 (Version 1)
Quarter: 2016Q4

REPORT INFORMATION
  Report Type: Spontaneous
  Country: US (occurrence: US)
  Receive Date: 20161110
  Receipt Date: 20161110
  Transmission Date: 20170207
  Serious: No
  Sender: FDA-Public Use
  Company Number: None

PATIENT

DRUGS (4)
  1. THYROXIN SODIUM [Suspect]
     Active Substance: LEVOTHYROXINE SODIUM
  2. METFORMIN [Suspect]
     Active Substance: METFORMIN HYDROCHLORIDE
  3. METFORMIN FORTE [Suspect]
     Active Substance: METFORMIN HYDROCHLORIDE
  4. THYRONORM [Suspect]
     Active Substance: LEVOTHYROXINE

REACTIONS (2)
  - Product label confusion [None]
  - Incorrect dosage administered [None]
